FAERS Safety Report 11771886 (Version 2)
Quarter: 2015Q4

REPORT INFORMATION
  Report Type: Report from Study
  Country: US (occurrence: US)
  Receive Date: 20151124
  Receipt Date: 20151223
  Transmission Date: 20160304
  Serious: Yes (Other)
  Sender: FDA-Public Use
  Company Number: US-GILEAD-2015-0183956

PATIENT
  Age: 66 Year
  Sex: Female

DRUGS (20)
  1. HYDROCODONE [Concomitant]
     Active Substance: HYDROCODONE
  2. MODAFINIL. [Concomitant]
     Active Substance: MODAFINIL
  3. VALIUM [Concomitant]
     Active Substance: DIAZEPAM
  4. ORTHOVISC [Concomitant]
     Active Substance: HYALURONIC ACID
  5. LOSARTAN. [Concomitant]
     Active Substance: LOSARTAN
  6. VOLTAREN [Concomitant]
     Active Substance: DICLOFENAC SODIUM
  7. COZAAR [Suspect]
     Active Substance: LOSARTAN POTASSIUM
     Indication: PRODUCT USED FOR UNKNOWN INDICATION
     Dosage: UNK
     Route: 065
     Dates: end: 201511
  8. TRAMADOL. [Concomitant]
     Active Substance: TRAMADOL
  9. COUMADIN [Concomitant]
     Active Substance: WARFARIN SODIUM
  10. ATORVASTATIN [Concomitant]
     Active Substance: ATORVASTATIN
  11. FUROSEMIDE. [Concomitant]
     Active Substance: FUROSEMIDE
  12. MONTELUKAST [Concomitant]
     Active Substance: MONTELUKAST SODIUM
  13. PANTOPRAZOLE [Concomitant]
     Active Substance: PANTOPRAZOLE SODIUM
  14. ADEMPAS [Suspect]
     Active Substance: RIOCIGUAT
     Indication: PULMONARY HYPERTENSION
     Dosage: 2 MG, TID
     Route: 065
  15. SERTRALINE [Concomitant]
     Active Substance: SERTRALINE HYDROCHLORIDE
  16. METFORMIN [Concomitant]
     Active Substance: METFORMIN HYDROCHLORIDE
  17. AMBRISENTAN [Suspect]
     Active Substance: AMBRISENTAN
     Indication: PULMONARY HYPERTENSION
     Dosage: 5 MG, QD
     Route: 065
     Dates: start: 20150330
  18. ALBUTEROL                          /00139501/ [Concomitant]
     Active Substance: ALBUTEROL
  19. VERAPAMIL [Concomitant]
     Active Substance: VERAPAMIL HYDROCHLORIDE
  20. TUDORZA PRESSAIR [Concomitant]
     Active Substance: ACLIDINIUM BROMIDE

REACTIONS (5)
  - Hypotension [Not Recovered/Not Resolved]
  - Cataract [Unknown]
  - Fatigue [Recovering/Resolving]
  - Gastroenteritis viral [Recovered/Resolved]
  - Blood pressure diastolic decreased [Unknown]

NARRATIVE: CASE EVENT DATE: 20151104
